FAERS Safety Report 23564991 (Version 6)
Quarter: 2024Q2

REPORT INFORMATION
  Report Type: Spontaneous
  Country: CO (occurrence: CO)
  Receive Date: 20240226
  Receipt Date: 20240405
  Transmission Date: 20240716
  Serious: No
  Sender: FDA-Public Use
  Company Number: CO-PFIZER INC-PV202400018958

PATIENT
  Age: 15 Year
  Sex: Male

DRUGS (1)
  1. GENOTROPIN [Suspect]
     Active Substance: SOMATROPIN
     Dosage: 1.4 MG, DAILY
     Route: 058
     Dates: start: 202110

REACTIONS (5)
  - Device information output issue [Unknown]
  - Device physical property issue [Unknown]
  - Device mechanical issue [Unknown]
  - Drug dose omission by device [Unknown]
  - Expired device used [Unknown]

NARRATIVE: CASE EVENT DATE: 20240205
